FAERS Safety Report 7834656-8 (Version None)
Quarter: 2011Q4

REPORT INFORMATION
  Report Type: 
  Country: None (occurrence: None)
  Receive Date: 20111024
  Receipt Date: 20111017
  Transmission Date: 20120403
  Serious: Yes (Life-Threatening, Hospitalization)
  Sender: FDA-Public Use
  Company Number: AU-UCBSA-043489

PATIENT
  Age: 66 Year
  Sex: Female

DRUGS (3)
  1. ARAVA [Concomitant]
     Dosage: STARTED APPROX. 2 YEARS AGO; AS USED: UNKNOWN
  2. METHOTREXATE [Concomitant]
     Dosage: STARTED APPROX. 12 YEARS AGO; AS USED: UNKNOWN
  3. CIMZIA [Suspect]
     Indication: RHEUMATOID ARTHRITIS
     Route: 058
     Dates: start: 20110101, end: 20110101

REACTIONS (1)
  - ORGANISING PNEUMONIA [None]
